FAERS Safety Report 6828805 (Version 5)
Quarter: 2015Q4

REPORT INFORMATION
  Report Type: Spontaneous
  Country: FR (occurrence: FR)
  Receive Date: 20081202
  Receipt Date: 20151015
  Transmission Date: 20160305
  Serious: Yes (Life-Threatening, Hospitalization, Other)
  Sender: FDA-Public Use
  Company Number: FR-PFIZER INC-2008101061

PATIENT
  Age: 58 Year
  Sex: Male

DRUGS (22)
  1. HUMIRA [Concomitant]
     Active Substance: ADALIMUMAB
     Dosage: 40MG ONE INJECTION WITHIN 15 DAYS
  2. DIFFU K [Concomitant]
     Active Substance: POTASSIUM CHLORIDE
     Dosage: 1200 MG, 3X/DAY (600MG 2 CAPSULES 3 TIMES PER DAY)
  3. TAHOR [Suspect]
     Active Substance: ATORVASTATIN CALCIUM
     Indication: ACUTE CORONARY SYNDROME
     Dosage: 80 MG, 1X/DAY
     Route: 048
     Dates: start: 200803, end: 20081123
  4. FUCIDINE /00065701/ [Interacting]
     Active Substance: FUSIDIC ACID
     Indication: OSTEITIS
  5. PANTOPRAZOLE [Concomitant]
     Active Substance: PANTOPRAZOLE SODIUM
     Dosage: 20 MG, 1X/DAY
  6. METHOTREXATE [Concomitant]
     Active Substance: METHOTREXATE
     Dosage: 2.5 MG TABLETS (4 TABLETS EVERY MONDAY)
  7. VASTAREL [Concomitant]
     Active Substance: TRIMETAZIDINE DIHYDROCHLORIDE
     Dosage: 35 MG, 2X/DAY
  8. FUCIDINE /00065701/ [Interacting]
     Active Substance: FUSIDIC ACID
     Indication: DIABETIC FOOT INFECTION
     Dosage: 500 MG, 3X/DAY
     Route: 048
     Dates: start: 20081028, end: 20081123
  9. METOPROLOL [Concomitant]
     Active Substance: METOPROLOL
     Dosage: 1 DF, 2X/DAY
  10. SPECIAFOLDINE [Concomitant]
     Active Substance: FOLIC ACID
     Dosage: 1 DF, DAILY
  11. BACTRIM [Concomitant]
     Active Substance: SULFAMETHOXAZOLE\TRIMETHOPRIM
     Dosage: 2 DF, DAILY
     Route: 048
     Dates: start: 20081028, end: 20081123
  12. KARDEGIC [Concomitant]
     Active Substance: ASPIRIN LYSINE
     Dosage: 1 DF, DAILY (75 ONE SACHET PER DAY)
  13. COVERSYL [Concomitant]
     Active Substance: PERINDOPRIL
     Dosage: 4MG ONE TABLET IN THE MORNING AND HALF A TABLET AT NOON
  14. CORTANCYL [Concomitant]
     Active Substance: PREDNISONE
     Dosage: 10 MG, 1X/DAY
  15. ALPRAZOLAM. [Concomitant]
     Active Substance: ALPRAZOLAM
     Dosage: 0.25 MG, 2X/DAY
  16. LANTUS [Concomitant]
     Active Substance: INSULIN GLARGINE
     Dosage: 24 IU, 1X/DAY IN THE EVENING
  17. HUMALOG [Concomitant]
     Active Substance: INSULIN LISPRO
     Dosage: 40 IU, DAILY (15 UNITS IN THE MORNING, 15 UNITS AT NOON, 10 UNITS IN THE EVENING)
  18. PLAVIX [Concomitant]
     Active Substance: CLOPIDOGREL BISULFATE
     Dosage: 75 MG, 1X/DAY
  19. ADANCOR [Concomitant]
     Active Substance: NICORANDIL
     Dosage: 20 MG, 2X/DAY
  20. DIALGIREX [Concomitant]
     Active Substance: ACETAMINOPHEN\PROPOXYPHENE HYDROCHLORIDE
     Dosage: 2 DF, 3X/DAY IF PAIN
  21. FORLAX [Concomitant]
     Active Substance: POLYETHYLENE GLYCOL 4000
     Dosage: 4000 ONE SACHET PER DAY
  22. TAHOR [Interacting]
     Active Substance: ATORVASTATIN CALCIUM
     Indication: MYOCARDIAL INFARCTION

REACTIONS (11)
  - Flatulence [Unknown]
  - Drug interaction [Recovered/Resolved]
  - Polymyositis [Recovered/Resolved]
  - Lung disorder [Unknown]
  - Myocardial infarction [Unknown]
  - Reflexes abnormal [Unknown]
  - Diabetic foot infection [Unknown]
  - Rhabdomyolysis [Recovered/Resolved]
  - Erythema [Unknown]
  - Hypersensitivity [Unknown]
  - Erythema [Unknown]

NARRATIVE: CASE EVENT DATE: 200805
